FAERS Safety Report 12540749 (Version 1)
Quarter: 2016Q3

REPORT INFORMATION
  Report Type: Spontaneous
  Country: FR (occurrence: FR)
  Receive Date: 20160708
  Receipt Date: 20160708
  Transmission Date: 20161109
  Serious: Yes (Other)
  Sender: FDA-Public Use
  Company Number: FR-IPSEN BIOPHARMACEUTICALS, INC.-2016-05791

PATIENT
  Sex: Male

DRUGS (4)
  1. DYSPORT [Suspect]
     Active Substance: ABOBOTULINUMTOXINA
     Indication: MUSCLE SPASTICITY
     Dosage: 22.5 U/KG
     Route: 030
     Dates: start: 201504, end: 201504
  2. DYSPORT [Suspect]
     Active Substance: ABOBOTULINUMTOXINA
     Indication: PRODUCT USE ISSUE
     Dosage: 23 U/KG
     Route: 030
     Dates: start: 201512, end: 201512
  3. DYSPORT [Suspect]
     Active Substance: ABOBOTULINUMTOXINA
     Indication: MUSCLE SPASTICITY
     Dosage: 21 U/KG
     Route: 030
     Dates: start: 20140325, end: 20140325
  4. DYSPORT [Suspect]
     Active Substance: ABOBOTULINUMTOXINA
     Indication: MUSCLE SPASTICITY
     Dosage: 22.5 U/KG
     Route: 030
     Dates: start: 201410, end: 201410

REACTIONS (5)
  - Drug ineffective for unapproved indication [Unknown]
  - Fatigue [Recovered/Resolved]
  - Neuromuscular toxicity [Unknown]
  - Decreased activity [Recovered/Resolved]
  - Injection site pain [Recovered/Resolved]

NARRATIVE: CASE EVENT DATE: 2016
